FAERS Safety Report 14348163 (Version 1)
Quarter: 2018Q1

REPORT INFORMATION
  Report Type: Spontaneous
  Country: US (occurrence: US)
  Receive Date: 20180103
  Receipt Date: 20180103
  Transmission Date: 20180509
  Serious: No
  Sender: FDA-Public Use
  Company Number: US-BAUSCH-BL-2017-028260

PATIENT
  Age: 4 Year
  Sex: Female
  Weight: 31.78 kg

DRUGS (2)
  1. XENAZINE [Suspect]
     Active Substance: TETRABENAZINE
     Route: 048
     Dates: start: 20161028
  2. XENAZINE [Suspect]
     Active Substance: TETRABENAZINE
     Indication: TIC
     Dosage: 12.5MG TABLET EVERY MORNING, 1/2 TABLET (12.5MG PER TABLET) EVERY NOON AND 12.5MG TABLET EVERY EVENI
     Route: 048
     Dates: start: 201608

REACTIONS (8)
  - Drug dose omission [Unknown]
  - Insomnia [Unknown]
  - Psychomotor hyperactivity [Unknown]
  - Overweight [Unknown]
  - Drug administration error [Unknown]
  - Anger [Unknown]
  - Somnolence [Unknown]
  - Off label use [Unknown]

NARRATIVE: CASE EVENT DATE: 201608
